FAERS Safety Report 10382122 (Version 1)
Quarter: 2014Q3

REPORT INFORMATION
  Report Type: Spontaneous
  Country: US (occurrence: US)
  Receive Date: 20140813
  Receipt Date: 20140813
  Transmission Date: 20150326
  Serious: No
  Sender: FDA-Public Use
  Company Number: US-BAYER-2014-120806

PATIENT
  Sex: Female

DRUGS (4)
  1. BETASERON [Suspect]
     Active Substance: INTERFERON BETA-1B
  2. REBIF [Suspect]
     Active Substance: INTERFERON BETA-1A
  3. COPAXONE [Suspect]
     Active Substance: GLATIRAMER ACETATE
  4. AVONEX [Suspect]
     Active Substance: INTERFERON BETA-1A

REACTIONS (2)
  - Paraesthesia [None]
  - Muscular weakness [None]
